FAERS Safety Report 18645685 (Version 2)
Quarter: 2021Q2

REPORT INFORMATION
  Report Type: Spontaneous
  Country: DE (occurrence: DE)
  Receive Date: 20201222
  Receipt Date: 20210511
  Transmission Date: 20210717
  Serious: Yes (Other)
  Sender: FDA-Public Use
  Company Number: DE-AMGEN-DEUSP2020205967

PATIENT
  Age: 71 Year
  Sex: Female
  Weight: 56 kg

DRUGS (9)
  1. DEKRISTOL [Concomitant]
     Active Substance: CHOLECALCIFEROL
     Route: 048
     Dates: start: 2015
  2. PANTOPRAZOL [PANTOPRAZOLE] [Concomitant]
     Active Substance: PANTOPRAZOLE
     Dosage: 20 MILLIGRAM
     Route: 048
     Dates: start: 2015
  3. KALINOR [CITRIC ACID;POTASSIUM BICARBONATE;POTASSIUM CITRATE] [Concomitant]
     Active Substance: CITRIC ACID MONOHYDRATE\POTASSIUM BICARBONATE\POTASSIUM CITRATE
     Dosage: UNK UNK, QD
     Route: 048
     Dates: start: 2015
  4. ZINK [ZINC] [Concomitant]
     Active Substance: ZINC
     Dosage: 20 MILLIGRAM, QD
     Route: 048
     Dates: start: 2015
  5. SELEN [SELENIUM] [Concomitant]
     Dosage: 200 MICROGRAM, QD
     Route: 048
     Dates: start: 2015
  6. ASPIRIN. [Concomitant]
     Active Substance: ASPIRIN
     Dosage: 100 MILLIGRAM, QD
     Route: 048
     Dates: start: 2015
  7. CAPECITABINE. [Suspect]
     Active Substance: CAPECITABINE
     Indication: HER2 NEGATIVE BREAST CANCER
     Dosage: 2000 MILLIGRAM
     Route: 048
     Dates: start: 20201016
  8. BEVACIZUMAB. [Suspect]
     Active Substance: BEVACIZUMAB
     Indication: HER2 NEGATIVE BREAST CANCER
     Dosage: 15 MILLIGRAM
     Route: 042
     Dates: start: 20201016
  9. DEKRISTOL [Concomitant]
     Active Substance: CHOLECALCIFEROL
     Dosage: 999 INTERNATIONAL UNIT, QWK
     Route: 048
     Dates: start: 2015

REACTIONS (5)
  - Hypertension [Unknown]
  - Visual impairment [Unknown]
  - Fatigue [Unknown]
  - Palmar-plantar erythrodysaesthesia syndrome [Unknown]
  - Off label use [Unknown]

NARRATIVE: CASE EVENT DATE: 20201016
